FAERS Safety Report 26006897 (Version 1)
Quarter: 2025Q4

REPORT INFORMATION
  Report Type: Spontaneous
  Country: US (occurrence: None)
  Receive Date: 20251105
  Receipt Date: 20251105
  Transmission Date: 20260119
  Serious: Yes (Other)
  Sender: FDA-CTU
  Company Number: None

PATIENT
  Age: 56 Year
  Sex: Female
  Weight: 99.45 kg

DRUGS (11)
  1. PRIMIDONE [Suspect]
     Active Substance: PRIMIDONE
     Indication: Restless legs syndrome
     Dosage: 1 TABLET(S) 3 TIMES A DAY ORAL ?
     Route: 048
     Dates: start: 20250410
  2. PRIMIDONE [Concomitant]
     Active Substance: PRIMIDONE
  3. ATORVASTATIN [Concomitant]
     Active Substance: ATORVASTATIN
  4. GABAPENTIN [Concomitant]
     Active Substance: GABAPENTIN
  5. METOPROLOL [Concomitant]
     Active Substance: METOPROLOL
  6. VALSARTAN [Concomitant]
     Active Substance: VALSARTAN
  7. CHLORTHALIDONE [Concomitant]
     Active Substance: CHLORTHALIDONE
  8. SPIRONOLACTONE [Concomitant]
     Active Substance: SPIRONOLACTONE
  9. ESCITALOPRAM [Concomitant]
     Active Substance: ESCITALOPRAM OXALATE
  10. ASPIRIN [Concomitant]
     Active Substance: ASPIRIN
  11. BLOOD PRESSURE CUFF [Concomitant]

REACTIONS (2)
  - Somnolence [None]
  - Impaired driving ability [None]

NARRATIVE: CASE EVENT DATE: 20251022
